FAERS Safety Report 8314640-0 (Version None)
Quarter: 2012Q2

REPORT INFORMATION
  Report Type: 
  Country: None (occurrence: None)
  Receive Date: 20120426
  Receipt Date: 20120418
  Transmission Date: 20120825
  Serious: Yes (Hospitalization, Other)
  Sender: FDA-Public Use
  Company Number: US-NOVOPROD-349771

PATIENT
  Age: 55 Year
  Sex: Female
  Weight: 124.26 kg

DRUGS (2)
  1. VICTOZA [Suspect]
     Indication: GLYCOSYLATED HAEMOGLOBIN INCREASED
     Dosage: 1.2 MG, QD
     Route: 058
     Dates: start: 20101101, end: 20101201
  2. VICTOZA [Suspect]
     Indication: TYPE 2 DIABETES MELLITUS

REACTIONS (3)
  - RENAL CANCER [None]
  - VOMITING [None]
  - NAUSEA [None]
